FAERS Safety Report 6895334-5 (Version None)
Quarter: 2010Q3

REPORT INFORMATION
  Report Type: 
  Country: None (occurrence: None)
  Receive Date: 20100802
  Receipt Date: 20100721
  Transmission Date: 20110219
  Serious: Yes (Life-Threatening, Other)
  Sender: FDA-Public Use
  Company Number: JP-PFIZER INC-2010075490

PATIENT
  Age: 61 Year
  Sex: Male
  Weight: 63 kg

DRUGS (15)
  1. SUNITINIB MALATE [Suspect]
     Indication: RENAL CELL CARCINOMA
     Dosage: 50 MG, 1X/DAY
     Route: 048
     Dates: start: 20090728, end: 20091208
  2. HUMALOG [Concomitant]
     Dosage: UNK
  3. BASEN [Concomitant]
     Dosage: 0.3 MG, 3X/DAY
     Route: 048
  4. FLIVAS [Concomitant]
     Dosage: 50 MG, 1X/DAY
     Route: 048
  5. GLIMICRON [Concomitant]
     Dosage: 40 MG, 2X/DAY
     Route: 048
  6. MAGNESIUM OXIDE [Concomitant]
     Dosage: UNK
     Route: 048
  7. VOLTAREN - SLOW RELEASE ^CIBA-GEIGY^ [Concomitant]
     Dosage: 37.5 MG, 2X/DAY
     Route: 048
  8. FAMOTIDINE [Concomitant]
     Dosage: 20 MG, 2X/DAY
     Route: 048
  9. HYPEN [Concomitant]
     Dosage: 200 MG, 2X/DAY
     Route: 048
  10. OXYCONTIN [Concomitant]
     Indication: RENAL CELL CARCINOMA
     Dosage: 5 MG, 2X/DAY
     Route: 048
     Dates: start: 20091020, end: 20091031
  11. OXYCONTIN [Concomitant]
     Dosage: 10 MG, 2X/DAY
     Route: 048
     Dates: start: 20091101, end: 20091126
  12. NOVAMIN [Concomitant]
     Dosage: 5 MG, 3X/DAY
     Route: 048
     Dates: start: 20091020
  13. OXINORM [Concomitant]
     Dosage: 1 G, AS NEEDED
     Route: 048
     Dates: start: 20091020
  14. STANZOME [Concomitant]
     Dosage: 30 MG, 1X/DAY
     Route: 048
     Dates: start: 20091021
  15. PRIMPERAN TAB [Concomitant]
     Dosage: 5 MG, 3X/DAY
     Route: 048
     Dates: start: 20091106

REACTIONS (6)
  - DIARRHOEA [None]
  - HYPERKALAEMIA [None]
  - PLATELET COUNT DECREASED [None]
  - RECTAL HAEMORRHAGE [None]
  - RECTAL ULCER [None]
  - SCROTAL ULCER [None]
